FAERS Safety Report 24703275 (Version 2)
Quarter: 2025Q4

REPORT INFORMATION
  Report Type: Spontaneous
  Country: US (occurrence: US)
  Receive Date: 20241205
  Receipt Date: 20251121
  Transmission Date: 20260117
  Serious: No
  Sender: MERCK SHARP & DOHME LLC
  Company Number: US-009507513-2412USA000422

PATIENT
  Sex: Male
  Weight: 86.2 kg

DRUGS (17)
  1. WINREVAIR [Suspect]
     Active Substance: SOTATERCEPT-CSRK
     Indication: Product used for unknown indication
  2. WINREVAIR [Suspect]
     Active Substance: SOTATERCEPT-CSRK
  3. WINREVAIR [Suspect]
     Active Substance: SOTATERCEPT-CSRK
  4. WINREVAIR [Suspect]
     Active Substance: SOTATERCEPT-CSRK
  5. TYVASO [Suspect]
     Active Substance: TREPROSTINIL
     Indication: Pulmonary arterial hypertension
     Dosage: CONCENTRATION OF 0.6 MG/ML
     Route: 055
     Dates: start: 20230706
  6. JARDIANCE [Concomitant]
     Active Substance: EMPAGLIFLOZIN
     Dosage: DOSE DESCRIPTION : UNK
  7. ALLEGRA ALLERGY [Concomitant]
     Active Substance: FEXOFENADINE HYDROCHLORIDE
     Dosage: DOSE DESCRIPTION : UNK
  8. TRELEGY ELLIPTA [Concomitant]
     Active Substance: FLUTICASONE FUROATE\UMECLIDINIUM BROMIDE\VILANTEROL TRIFENATATE
     Dosage: DOSE DESCRIPTION : UNK
  9. LASIX [Concomitant]
     Active Substance: FUROSEMIDE
     Dosage: DOSE DESCRIPTION : UNK
  10. TADALAFIL [Concomitant]
     Active Substance: TADALAFIL
     Dosage: DOSE DESCRIPTION : UNK
  11. LISINOPRIL [Concomitant]
     Active Substance: LISINOPRIL
     Dosage: DOSE DESCRIPTION : UNK
  12. GLIPIZIDE [Concomitant]
     Active Substance: GLIPIZIDE
     Dosage: DOSE DESCRIPTION : UNK
  13. LETAIRIS [Concomitant]
     Active Substance: AMBRISENTAN
     Dosage: DOSE DESCRIPTION : UNK
  14. VENTOLIN HFA [Concomitant]
     Active Substance: ALBUTEROL SULFATE
     Dosage: DOSE DESCRIPTION : UNK
  15. SIMVASTATIN [Concomitant]
     Active Substance: SIMVASTATIN
     Dosage: DOSE DESCRIPTION : UNK
  16. SPIRONOLACTONE [Concomitant]
     Active Substance: SPIRONOLACTONE
     Dosage: DOSE DESCRIPTION : UNK
  17. OXYGEN [Concomitant]
     Active Substance: OXYGEN
     Dosage: DOSE DESCRIPTION : UNK

REACTIONS (2)
  - Haemoglobin increased [Unknown]
  - Epistaxis [Unknown]

NARRATIVE: CASE EVENT DATE: 20240101
